FAERS Safety Report 5948734-1 (Version None)
Quarter: 2008Q4

REPORT INFORMATION
  Report Type: 
  Country: None (occurrence: None)
  Receive Date: 20081107
  Receipt Date: 20081027
  Transmission Date: 20090506
  Serious: Yes (Hospitalization)
  Sender: FDA-Public Use
  Company Number: 2008-04071

PATIENT
  Age: 5 Year
  Sex: Female
  Weight: 20.9 kg

DRUGS (7)
  1. VELCADE [Suspect]
     Indication: NEUROBLASTOMA
     Dosage: 1 MG, IV BOLUS
     Route: 040
     Dates: start: 20080922, end: 20081023
  2. IRINOTECAN HCL [Suspect]
     Indication: NEUROBLASTOMA
     Dosage: 33 MG, INTRAVENOUS
     Route: 042
     Dates: start: 20080922, end: 20081017
  3. ZOFRAN [Concomitant]
  4. BACTRIM [Concomitant]
  5. OXYCODONE HCL [Concomitant]
  6. COLACE(DOCUSATE SODIUM) [Concomitant]
  7. MIRALAX [Concomitant]

REACTIONS (3)
  - BACILLUS INFECTION [None]
  - CENTRAL LINE INFECTION [None]
  - STAPHYLOCOCCAL INFECTION [None]
